FAERS Safety Report 12937812 (Version 1)
Quarter: 2016Q4

REPORT INFORMATION
  Report Type: Spontaneous
  Country: ES (occurrence: ES)
  Receive Date: 20161114
  Receipt Date: 20161114
  Transmission Date: 20170207
  Serious: Yes (Other)
  Sender: FDA-Public Use
  Company Number: ES-BAYER-2016-213926

PATIENT
  Age: 47 Year
  Sex: Female

DRUGS (1)
  1. QLAIRA [Suspect]
     Active Substance: DIENOGEST\ESTRADIOL VALERATE
     Indication: UTERINE LEIOMYOMA
     Dosage: UNK
     Dates: start: 20161025

REACTIONS (5)
  - Abdominal pain upper [Unknown]
  - Gastrooesophageal reflux disease [Unknown]
  - Anaemia [Unknown]
  - Off label use [Unknown]
  - Genital haemorrhage [Unknown]

NARRATIVE: CASE EVENT DATE: 20161104
